FAERS Safety Report 17501630 (Version 1)
Quarter: 2020Q1

REPORT INFORMATION
  Report Type: Spontaneous
  Country: US (occurrence: US)
  Receive Date: 20200224
  Receipt Date: 20200224
  Transmission Date: 20200409
  Serious: No
  Sender: FDA-Public Use
  Company Number: None

PATIENT
  Age: 50 Year
  Sex: Female

DRUGS (1)
  1. LUPRON DEPOT [Suspect]
     Active Substance: LEUPROLIDE ACETATE
     Route: 030
     Dates: start: 202001

REACTIONS (9)
  - Aggression [None]
  - Irritability [None]
  - Crying [None]
  - Affect lability [None]
  - Stress [None]
  - Loss of employment [None]
  - Anger [None]
  - Depression [None]
  - Impatience [None]

NARRATIVE: CASE EVENT DATE: 20200224
